FAERS Safety Report 4582832-2 (Version None)
Quarter: 2005Q1

REPORT INFORMATION
  Report Type: 
  Country: None (occurrence: None)
  Receive Date: 20050215
  Receipt Date: 20050113
  Transmission Date: 20050727
  Serious: Yes (Hospitalization, Disabling)
  Sender: FDA-Public Use
  Company Number: US-AMGEN-US106426

PATIENT
  Sex: Female

DRUGS (15)
  1. ENBREL [Suspect]
     Indication: RHEUMATOID ARTHRITIS
     Route: 058
     Dates: start: 20030413, end: 20040310
  2. METHOTREXATE [Suspect]
     Route: 048
     Dates: start: 20020520, end: 20040310
  3. ARAVA [Suspect]
     Route: 048
     Dates: start: 20030228, end: 20031124
  4. VIOXX [Concomitant]
     Route: 048
     Dates: start: 20040519
  5. LIPITOR [Concomitant]
     Route: 048
     Dates: start: 20020521
  6. HYDROCHLOROTHIAZIDE [Concomitant]
     Route: 048
     Dates: start: 20020521
  7. LANTUS [Concomitant]
     Route: 058
     Dates: start: 20031124
  8. ALTACE [Concomitant]
     Route: 048
     Dates: start: 20020521
  9. POTASSIUM CHLORIDE [Concomitant]
     Route: 048
     Dates: start: 20020521
  10. AEROBID [Concomitant]
     Dates: start: 20030103
  11. ADVAIR DISKUS 100/50 [Concomitant]
     Route: 048
     Dates: start: 20030103
  12. SINGULAIR [Concomitant]
     Route: 048
     Dates: start: 20030103
  13. COMBIVENT [Concomitant]
  14. GLUCOVANCE [Concomitant]
     Route: 048
  15. ALLEGRA [Concomitant]
     Route: 048

REACTIONS (8)
  - ADRENAL ADENOMA [None]
  - AORTIC ANEURYSM [None]
  - BALANCE DISORDER [None]
  - ESCHERICHIA URINARY TRACT INFECTION [None]
  - PATHOGEN RESISTANCE [None]
  - RENAL CYST [None]
  - URINARY TRACT INFECTION [None]
  - VERTIGO [None]
